FAERS Safety Report 12211747 (Version 2)
Quarter: 2016Q2

REPORT INFORMATION
  Report Type: Report from Study
  Country: KR (occurrence: US)
  Receive Date: 20160325
  Receipt Date: 20160401
  Transmission Date: 20160815
  Serious: Yes (Hospitalization)
  Sender: FDA-Public Use
  Company Number: US-ASTRAZENECA-2015SF31801

PATIENT
  Age: 21335 Day
  Sex: Male

DRUGS (11)
  1. MUCOMYST [Concomitant]
     Active Substance: ACETYLCYSTEINE
     Dosage: 800 MG
     Route: 055
     Dates: start: 20131001, end: 20131017
  2. SOLONDO [Concomitant]
     Active Substance: PREDNISOLONE
     Dosage: 20 MG
     Route: 048
     Dates: start: 20131007, end: 20131104
  3. CRAVIT [Concomitant]
     Active Substance: LEVOFLOXACIN
     Route: 048
     Dates: start: 20131002, end: 20131102
  4. VENTOLIN [Concomitant]
     Active Substance: ALBUTEROL SULFATE
     Dosage: 5 MG
     Route: 055
     Dates: start: 20100722
  5. MAGNESIUM OXIDE. [Concomitant]
     Active Substance: MAGNESIUM OXIDE
     Dosage: 1500 MG
     Route: 048
     Dates: start: 20131002
  6. ROFLUMILAST [Suspect]
     Active Substance: ROFLUMILAST
     Indication: PRODUCT USED FOR UNKNOWN INDICATION
     Route: 048
     Dates: start: 20131007, end: 20131115
  7. TAZOCIN [Concomitant]
     Active Substance: PIPERACILLIN SODIUM\TAZOBACTAM SODIUM
     Dosage: 13.5 G
     Dates: start: 20131002, end: 20131017
  8. METHYLPREDNISOLONE SODIUM SUCCINATE. [Concomitant]
     Active Substance: METHYLPREDNISOLONE SODIUM SUCCINATE
     Dosage: 31.25 MG
     Route: 042
     Dates: start: 20131002
  9. AVENTRO [Concomitant]
     Dosage: 2 MG
     Route: 055
     Dates: start: 20130306
  10. APETROL [Concomitant]
     Dosage: 400 MG
     Route: 048
     Dates: start: 20131002, end: 20131030
  11. ACETYLCYSTEINE. [Concomitant]
     Active Substance: ACETYLCYSTEINE
     Dosage: 600 MG
     Route: 048
     Dates: start: 20131002, end: 20131103

REACTIONS (4)
  - Dyspnoea [Recovering/Resolving]
  - Cough [Recovering/Resolving]
  - Diarrhoea [Recovered/Resolved]
  - Productive cough [Recovering/Resolving]

NARRATIVE: CASE EVENT DATE: 20131102
